FAERS Safety Report 24437321 (Version 1)
Quarter: 2024Q4

REPORT INFORMATION
  Report Type: Spontaneous
  Country: US (occurrence: None)
  Receive Date: 20241011
  Receipt Date: 20241011
  Transmission Date: 20250114
  Serious: No
  Sender: Public
  Company Number: None

PATIENT
  Age: 63 Year
  Sex: Female
  Weight: 74 kg

DRUGS (2)
  1. RITUXIMAB-PVVR [Suspect]
     Active Substance: RITUXIMAB-PVVR
     Indication: Sjogren^s syndrome
     Dosage: OTHER FREQUENCY : ONCE;?
     Route: 042
     Dates: start: 20240612, end: 20240612
  2. RITUXIMAB-PVVR [Suspect]
     Active Substance: RITUXIMAB-PVVR
     Indication: Vasculitis

REACTIONS (2)
  - Throat tightness [None]
  - Dyspnoea [None]

NARRATIVE: CASE EVENT DATE: 20240612
